FAERS Safety Report 18544039 (Version 1)
Quarter: 2020Q4

REPORT INFORMATION
  Report Type: Spontaneous
  Country: US (occurrence: US)
  Receive Date: 20201124
  Receipt Date: 20201124
  Transmission Date: 20210114
  Serious: Yes (Hospitalization, Other)
  Sender: FDA-Public Use
  Company Number: US-JNJFOC-20201125192

PATIENT
  Sex: Male
  Weight: 82 kg

DRUGS (11)
  1. XARELTO [Suspect]
     Active Substance: RIVAROXABAN
     Indication: CEREBROVASCULAR ACCIDENT PROPHYLAXIS
  2. XARELTO [Suspect]
     Active Substance: RIVAROXABAN
     Indication: ATRIAL FIBRILLATION
     Route: 048
  3. LIPITOR [Concomitant]
     Active Substance: ATORVASTATIN CALCIUM
  4. DONEPEZIL. [Concomitant]
     Active Substance: DONEPEZIL
  5. LASIX [Concomitant]
     Active Substance: FUROSEMIDE
  6. ELAVIL [Concomitant]
     Active Substance: AMITRIPTYLINE HYDROCHLORIDE
  7. VITAMIN B12 [Concomitant]
     Active Substance: CYANOCOBALAMIN
  8. RAMIPRIL. [Concomitant]
     Active Substance: RAMIPRIL
  9. FLOMAX [Concomitant]
     Active Substance: TAMSULOSIN HYDROCHLORIDE
  10. MULTIVITAMIN                       /00097801/ [Concomitant]
     Active Substance: VITAMINS
  11. ISOSORBIDE DIHYDRATE [Concomitant]

REACTIONS (3)
  - Cellulitis [Unknown]
  - International normalised ratio increased [Recovering/Resolving]
  - Cognitive disorder [Unknown]
